FAERS Safety Report 7026581-X (Version None)
Quarter: 2010Q3

REPORT INFORMATION
  Report Type: 
  Country: None (occurrence: None)
  Receive Date: 20100930
  Receipt Date: 20100927
  Transmission Date: 20110219
  Serious: Yes (Death, Life-Threatening, Hospitalization)
  Sender: FDA-Public Use
  Company Number: WAES 1009USA04920

PATIENT
  Age: 8 Year
  Sex: Male

DRUGS (3)
  1. DECADRON [Suspect]
     Dosage: PO
     Route: 048
  2. SUTENT [Suspect]
     Indication: GLIOBLASTOMA MULTIFORME
     Dosage: 15 MG/M[2]/DAILY/PO
     Route: 048
     Dates: start: 20100610, end: 20100623
  3. SUTENT [Suspect]
     Indication: GLIOBLASTOMA MULTIFORME
     Dosage: 15 MG/M[2]/DAILY/PO
     Route: 048
     Dates: start: 20100608

REACTIONS (18)
  - APNOEA [None]
  - BLOOD GLUCOSE INCREASED [None]
  - BLOOD PH DECREASED [None]
  - CEREBRAL HAEMORRHAGE [None]
  - CRANIAL NERVE DISORDER [None]
  - DISEASE PROGRESSION [None]
  - DYSPHAGIA [None]
  - DYSPNOEA [None]
  - GENERAL PHYSICAL HEALTH DETERIORATION [None]
  - GLIOBLASTOMA MULTIFORME [None]
  - HYPOPNOEA [None]
  - HYPOTENSION [None]
  - HYPOXIA [None]
  - IDIOSYNCRATIC DRUG REACTION [None]
  - INTERNATIONAL NORMALISED RATIO DECREASED [None]
  - PO2 INCREASED [None]
  - SOMNOLENCE [None]
  - TUMOUR COMPRESSION [None]
